FAERS Safety Report 13743069 (Version 2)
Quarter: 2017Q3

REPORT INFORMATION
  Report Type: Spontaneous
  Country: DE (occurrence: DE)
  Receive Date: 20170711
  Receipt Date: 20170719
  Transmission Date: 20171127
  Serious: Yes (Life-Threatening, Other)
  Sender: FDA-Public Use
  Company Number: DE-TEVA-783950GER

PATIENT
  Age: 74 Year
  Sex: Female
  Weight: 46 kg

DRUGS (2)
  1. RANITIDIN-RATIOPHARM 50 MG/5 ML INJEKTIONSLOESUNG [Suspect]
     Active Substance: RANITIDINE
     Indication: CHEMOTHERAPY
     Dosage: 50 MILLIGRAM DAILY;
     Route: 042
     Dates: start: 20170622
  2. RANITIDIN-RATIOPHARM 50 MG/5 ML INJEKTIONSLOESUNG [Suspect]
     Active Substance: RANITIDINE
     Indication: PREMEDICATION

REACTIONS (7)
  - Circulatory collapse [Recovered/Resolved]
  - Cardiac arrest [Recovered/Resolved]
  - Respiratory arrest [Recovered/Resolved]
  - Hypersensitivity [Recovered/Resolved]
  - Oropharyngeal pain [Recovered/Resolved]
  - Enuresis [Recovered/Resolved]
  - Loss of consciousness [Recovered/Resolved]

NARRATIVE: CASE EVENT DATE: 20170622
